FAERS Safety Report 4559526-2 (Version None)
Quarter: 2005Q1

REPORT INFORMATION
  Report Type: 
  Country: None (occurrence: None)
  Receive Date: 20050124
  Receipt Date: 20041209
  Transmission Date: 20050727
  Serious: Yes (Life-Threatening, Hospitalization, Other)
  Sender: FDA-Public Use
  Company Number: US-GLAXOSMITHKLINE-A0536768A

PATIENT
  Sex: Male

DRUGS (3)
  1. WELLBUTRIN [Suspect]
     Indication: DEPRESSION
     Route: 048
  2. TYLENOL [Suspect]
  3. ZOLOFT [Concomitant]

REACTIONS (5)
  - AMNESIA [None]
  - GRAND MAL CONVULSION [None]
  - INTENTIONAL MISUSE [None]
  - REFUSAL OF TREATMENT BY PATIENT [None]
  - SUICIDE ATTEMPT [None]
